FAERS Safety Report 19952573 (Version 4)
Quarter: 2022Q1

REPORT INFORMATION
  Report Type: Report from Study
  Country: US (occurrence: US)
  Receive Date: 20211013
  Receipt Date: 20220112
  Transmission Date: 20220423
  Serious: No
  Sender: FDA-Public Use
  Company Number: NVSC2021US234222

PATIENT
  Age: 11 Year
  Sex: Female

DRUGS (2)
  1. OMNITROPE [Suspect]
     Active Substance: SOMATROPIN
     Indication: Product used for unknown indication
     Dosage: 1.8 MG, QD
     Route: 058
  2. OMNITROPE [Suspect]
     Active Substance: SOMATROPIN
     Dosage: 1.8 UNK
     Route: 058
     Dates: start: 20210710, end: 20211027

REACTIONS (4)
  - Injection site pain [Unknown]
  - Product dose omission issue [Unknown]
  - Anxiety [Unknown]
  - Wrong technique in device usage process [Unknown]

NARRATIVE: CASE EVENT DATE: 20210920
